FAERS Safety Report 18268170 (Version 2)
Quarter: 2020Q4

REPORT INFORMATION
  Report Type: Report from Study
  Country: DE (occurrence: DE)
  Receive Date: 20200915
  Receipt Date: 20201005
  Transmission Date: 20210113
  Serious: Yes (Death, Other)
  Sender: FDA-Public Use
  Company Number: DE-MYLANLABS-2020M1077561

PATIENT
  Age: 66 Year
  Sex: Male
  Weight: 70.4 kg

DRUGS (18)
  1. CETUXIMAB. [Suspect]
     Active Substance: CETUXIMAB
     Indication: NEOPLASM RECURRENCE
     Dosage: UNK, CONTINUATION OF CHEMOTHERAPY ON DAY 6 OF FIRST CYCLE
     Route: 065
     Dates: start: 201909
  2. CISPLATIN. [Suspect]
     Active Substance: CISPLATIN
     Indication: METASTATIC NEOPLASM
     Dosage: 75 MILLIGRAM/SQ. METER, DAY 1
     Route: 065
     Dates: start: 201908
  3. ATENOLOL. [Suspect]
     Active Substance: ATENOLOL
     Indication: PRODUCT USED FOR UNKNOWN INDICATION
     Dosage: UNK
     Route: 065
  4. CARBOPLATIN. [Suspect]
     Active Substance: CARBOPLATIN
     Indication: IMMUNOCHEMOTHERAPY
     Dosage: 5 MILLIGRAM/SQ. METER, DAY 1 AND REPETITION ON DAY 21
     Route: 065
     Dates: start: 20200615, end: 20200622
  5. CETUXIMAB. [Suspect]
     Active Substance: CETUXIMAB
     Dosage: 250 MILLIGRAM/SQ. METER, Q3W (DAY 15)
     Route: 065
  6. CERNEVIT [Suspect]
     Active Substance: VITAMINS
     Indication: PARENTERAL NUTRITION
     Dosage: 750 MILLIGRAM, QD (ROUTE: CENTRAL VENOUS)
     Dates: start: 20200713, end: 20200728
  7. FLUOROURACIL. [Suspect]
     Active Substance: FLUOROURACIL
     Indication: IMMUNOCHEMOTHERAPY
     Dosage: UNK, OVER 96 HOURS
     Route: 065
     Dates: start: 20200615, end: 20200622
  8. CLEXANE [Suspect]
     Active Substance: ENOXAPARIN SODIUM
     Indication: ANTICOAGULANT THERAPY
     Dosage: UNK, SHOULD BE PAUSED ONE DAY BEFORE PORT INSTALLEMENT ON 07JUL.
     Route: 065
  9. DOCETAXEL. [Suspect]
     Active Substance: DOCETAXEL
     Indication: NEOPLASM RECURRENCE
     Dosage: UNK
  10. CETUXIMAB. [Suspect]
     Active Substance: CETUXIMAB
     Dosage: 250 MILLIGRAM/SQ. METER, Q3W (DAY 8)
     Route: 065
     Dates: start: 20190830
  11. OLIMEL [Suspect]
     Active Substance: AMINO ACIDS\DEXTROSE\SOYBEAN OIL
     Dosage: 1500 MILLILITER, QD (INFUSION RUNS FROM 18:00 HOURS TO 06:00 HOURS, DOSE INCREASED)
     Route: 042
     Dates: start: 20200720, end: 20200727
  12. OLIMEL [Suspect]
     Active Substance: AMINO ACIDS\DEXTROSE\SOYBEAN OIL
     Dosage: 1500 MILLILITER, QD (DRUG REINTRODUCED AND DISCONTINUED)
     Route: 042
     Dates: start: 20200728, end: 20200728
  13. DOCETAXEL. [Suspect]
     Active Substance: DOCETAXEL
     Indication: METASTATIC NEOPLASM
     Dosage: 75 MILLIGRAM/SQ. METER, DAY 1
     Route: 065
     Dates: start: 201908
  14. OLIMEL [Suspect]
     Active Substance: AMINO ACIDS\DEXTROSE\SOYBEAN OIL
     Indication: PARENTERAL NUTRITION
     Dosage: 1000 MILLILITER, QD (ROUTE: CENTRAL VENOUS)
     Dates: start: 20200713
  15. CETUXIMAB. [Suspect]
     Active Substance: CETUXIMAB
     Indication: METASTATIC NEOPLASM
     Dosage: 400 MILLIGRAM, Q3W, LOADING DOSE; DAY 1
     Route: 065
  16. PEMBROLIZUMAB. [Suspect]
     Active Substance: PEMBROLIZUMAB
     Indication: IMMUNOCHEMOTHERAPY
     Dosage: 200 MILLIGRAM
     Route: 065
     Dates: start: 20200615, end: 20200622
  17. CISPLATIN. [Suspect]
     Active Substance: CISPLATIN
     Indication: NEOPLASM RECURRENCE
     Dosage: UNK, CONSOLIDATING RADIOCHEMOTHERAPY
     Route: 065
     Dates: start: 201912
  18. ADDEL TRACE [Suspect]
     Active Substance: ELECTROLYTES NOS\MINERALS
     Indication: PARENTERAL NUTRITION
     Dosage: 10 MILLILITER, QD
     Route: 042
     Dates: start: 20200713, end: 20200728

REACTIONS (10)
  - Peripheral coldness [Recovered/Resolved]
  - Pneumonia pneumococcal [Unknown]
  - Unresponsive to stimuli [Recovered/Resolved]
  - Cold sweat [Recovered/Resolved]
  - Eye movement disorder [Recovered/Resolved]
  - Pyrexia [Recovered/Resolved]
  - Tachycardia [Recovered/Resolved]
  - Death [Fatal]
  - Tremor [Recovered/Resolved]
  - Chills [Recovered/Resolved]

NARRATIVE: CASE EVENT DATE: 20200726
